FAERS Safety Report 13892950 (Version 1)
Quarter: 2017Q3

REPORT INFORMATION
  Report Type: Spontaneous
  Country: US (occurrence: US)
  Receive Date: 20170822
  Receipt Date: 20170822
  Transmission Date: 20171127
  Serious: No
  Sender: FDA-Public Use
  Company Number: US-ROCHE-1201109

PATIENT

DRUGS (2)
  1. TRASTUZUMAB. [Suspect]
     Active Substance: TRASTUZUMAB
     Indication: PRODUCT USED FOR UNKNOWN INDICATION
     Route: 065
  2. ARIMIDEX [Concomitant]
     Active Substance: ANASTROZOLE
     Route: 065

REACTIONS (3)
  - Arthralgia [Not Recovered/Not Resolved]
  - Rhinorrhoea [Unknown]
  - Influenza [Unknown]
